FAERS Safety Report 5733196-X (Version None)
Quarter: 2008Q2

REPORT INFORMATION
  Report Type: 
  Country: None (occurrence: None)
  Receive Date: 20080509
  Receipt Date: 20080428
  Transmission Date: 20081010
  Serious: Yes (Death, Other)
  Sender: FDA-Public Use
  Company Number: US-ROCHE-550384

PATIENT
  Sex: Male
  Weight: 77.6 kg

DRUGS (1)
  1. XELODA [Suspect]
     Route: 065
     Dates: end: 20080128

REACTIONS (5)
  - DEATH [None]
  - MALIGNANT NEOPLASM PROGRESSION [None]
  - NAUSEA [None]
  - OESOPHAGEAL CARCINOMA [None]
  - VOMITING [None]
